FAERS Safety Report 9586457 (Version 1)
Quarter: 2013Q4

REPORT INFORMATION
  Report Type: Spontaneous
  Country: IT (occurrence: IT)
  Receive Date: 20131003
  Receipt Date: 20131003
  Transmission Date: 20140711
  Serious: Yes (Other)
  Sender: FDA-Public Use
  Company Number: IT-MYLANLABS-2013S1021330

PATIENT
  Age: 69 Year
  Sex: Male

DRUGS (12)
  1. EPIRUBICIN [Suspect]
     Indication: LEIOMYOSARCOMA
     Dosage: FOUR CYCLES OF 60 MG/M2 ON DAYS 1 AND 2 REPEATED EVERY 21 DAYS
     Route: 042
  2. IFOSFAMIDE [Suspect]
     Indication: LEIOMYOSARCOMA
     Dosage: FOUR CYCLES OF 3 G/M2 ON DAYS 1-3 REPEATED EVERY 21 DAYS
     Route: 042
  3. GEMCITABINE [Suspect]
     Indication: LEIOMYOSARCOMA
     Dosage: EIGHT CYCLES OF 1 G/M2 ON DAYS 1, 8 AND 15 REPEATED EVERY 3 WEEKS
     Route: 065
     Dates: end: 200810
  4. TRABECTEDIN [Suspect]
     Indication: LEIOMYOSARCOMA
     Dosage: 22 CYCLES OF 1.3 MG/M2/24H EVERY 21 DAYS
     Route: 041
     Dates: end: 201012
  5. DEXAMETHASONE [Concomitant]
     Dosage: 8MG ADMINISTERED THE DAY BEFORE TRABECTEDIN AND TAPERED IN 4 DAYS AFTER EACH ADMINISTRATION
     Route: 065
  6. REPAGLINIDE [Concomitant]
     Indication: TYPE 2 DIABETES MELLITUS
     Route: 065
  7. AMLODIPINE [Concomitant]
     Indication: HYPERTENSION
     Route: 065
  8. PRAVASTATIN [Concomitant]
     Indication: DYSLIPIDAEMIA
     Route: 065
  9. TAMSULOSIN [Concomitant]
     Indication: BENIGN PROSTATIC HYPERPLASIA
     Route: 065
  10. FINASTERIDE [Concomitant]
     Indication: BENIGN PROSTATIC HYPERPLASIA
     Route: 065
  11. SODIUM CHLORIDE [Concomitant]
     Route: 065
  12. ACETYLCYSTEINE [Concomitant]
     Route: 065

REACTIONS (9)
  - Neutropenia [Unknown]
  - Thrombocytopenia [Unknown]
  - Leukopenia [Unknown]
  - Anaemia [Unknown]
  - Fatigue [Unknown]
  - Mucosal inflammation [Unknown]
  - Pyrexia [Unknown]
  - Aspartate aminotransferase increased [Unknown]
  - Alanine aminotransferase increased [Unknown]
